FAERS Safety Report 14806269 (Version 1)
Quarter: 2018Q2

REPORT INFORMATION
  Report Type: Spontaneous
  Country: US (occurrence: US)
  Receive Date: 20180425
  Receipt Date: 20180425
  Transmission Date: 20180711
  Serious: Yes (Hospitalization)
  Sender: FDA-Public Use
  Company Number: US-JNJFOC-20180422262

PATIENT
  Age: 35 Year
  Sex: Male
  Weight: 163.3 kg

DRUGS (2)
  1. OTEZLA [Concomitant]
     Active Substance: APREMILAST
     Indication: PSORIASIS
     Route: 065
     Dates: start: 201702
  2. TREMFYA [Suspect]
     Active Substance: GUSELKUMAB
     Indication: PSORIASIS
     Route: 058

REACTIONS (3)
  - Cross infection [Unknown]
  - Drug dose omission [Unknown]
  - Bacteraemia [Unknown]

NARRATIVE: CASE EVENT DATE: 201803
